FAERS Safety Report 23219021 (Version 1)
Quarter: 2023Q4

REPORT INFORMATION
  Report Type: Other
  Country: AT (occurrence: AT)
  Receive Date: 20231122
  Receipt Date: 20231122
  Transmission Date: 20240109
  Serious: Yes (Other)
  Sender: FDA-Public Use
  Company Number: AT-ALVOGEN-2023092620

PATIENT
  Age: 46 Year
  Sex: Female

DRUGS (1)
  1. DOXORUBICIN [Suspect]
     Active Substance: DOXORUBICIN
     Indication: Leiomyosarcoma
     Dosage: MONOTHERAPY (75 MG/M2 ONCE EVERY 21 DAYS) FOR FOUR CYCLES
     Route: 040

REACTIONS (3)
  - Leiomyosarcoma [Recovering/Resolving]
  - Disease progression [Recovering/Resolving]
  - Drug resistance [Unknown]
